FAERS Safety Report 18940628 (Version 2)
Quarter: 2022Q2

REPORT INFORMATION
  Report Type: Spontaneous
  Country: CA (occurrence: None)
  Receive Date: 20210225
  Receipt Date: 20220606
  Transmission Date: 20220721
  Serious: Yes (Hospitalization)
  Sender: FDA-Public Use
  Company Number: CA-ROCHE-2772366

PATIENT
  Age: 52 Year
  Sex: Female

DRUGS (27)
  1. CLONAZEPAM [Suspect]
     Active Substance: CLONAZEPAM
     Indication: Hypomania
     Route: 048
  2. DIAZEPAM [Suspect]
     Active Substance: DIAZEPAM
     Indication: Depression
     Route: 048
  3. DIAZEPAM [Suspect]
     Active Substance: DIAZEPAM
     Route: 048
  4. DIAZEPAM [Suspect]
     Active Substance: DIAZEPAM
     Route: 048
  5. OLANZAPINE [Suspect]
     Active Substance: OLANZAPINE
     Indication: Psychotic disorder
     Route: 048
  6. OLANZAPINE [Suspect]
     Active Substance: OLANZAPINE
     Route: 048
  7. PROCYCLIDINE [Suspect]
     Active Substance: PROCYCLIDINE
     Indication: Prophylaxis
     Route: 048
  8. QUETIAPINE [Suspect]
     Active Substance: QUETIAPINE
     Indication: Psychotic disorder
     Route: 048
  9. RISPERIDONE [Suspect]
     Active Substance: RISPERIDONE
     Indication: Psychotic disorder
     Route: 048
  10. TEGRETOL [Suspect]
     Active Substance: CARBAMAZEPINE
     Indication: Hypomania
     Route: 065
  11. TRAZODONE [Suspect]
     Active Substance: TRAZODONE HYDROCHLORIDE
     Indication: Depression
     Route: 048
  12. ACETAMINOPHEN [Suspect]
     Active Substance: ACETAMINOPHEN
     Indication: Pain in extremity
     Route: 048
  13. PROCYCLIDINE HYDROCHLORIDE [Suspect]
     Active Substance: PROCYCLIDINE HYDROCHLORIDE
     Indication: Musculoskeletal stiffness
     Route: 048
  14. APTIVUS [Suspect]
     Active Substance: TIPRANAVIR
     Indication: HIV infection
     Route: 048
  15. QUETIAPINE FUMARATE [Suspect]
     Active Substance: QUETIAPINE FUMARATE
     Indication: Psychotic disorder
     Route: 048
  16. LACTULOSE [Concomitant]
     Active Substance: LACTULOSE
  17. LAMIVUDINE [Concomitant]
     Active Substance: LAMIVUDINE
  18. ABACAVIR [Concomitant]
     Active Substance: ABACAVIR
  19. ATOVAQUONE;PROGUANIL [Concomitant]
  20. BISACODYL [Concomitant]
     Active Substance: BISACODYL
  21. CALCIUM CARBONATE [Concomitant]
     Active Substance: CALCIUM CARBONATE
  22. CHLORAL HYDRATE [Concomitant]
     Active Substance: CHLORAL HYDRATE
  23. IMODIUM [Concomitant]
     Active Substance: LOPERAMIDE HYDROCHLORIDE
  24. KALETRA [Concomitant]
     Active Substance: LOPINAVIR\RITONAVIR
  25. LITHIUM [Concomitant]
     Active Substance: LITHIUM
  26. NYSTATIN [Concomitant]
     Active Substance: NYSTATIN
  27. ENFUVIRTIDE [Concomitant]
     Active Substance: ENFUVIRTIDE

REACTIONS (12)
  - Blood bilirubin increased [Unknown]
  - Cholelithiasis [Unknown]
  - Condition aggravated [Unknown]
  - Hepatic enzyme increased [Unknown]
  - Hepatotoxicity [Unknown]
  - Hypomania [Unknown]
  - Jaundice cholestatic [Unknown]
  - Nausea [Unknown]
  - Pneumonia [Unknown]
  - Schizophrenia [Unknown]
  - Vomiting [Unknown]
  - Psychotic disorder [Unknown]
